FAERS Safety Report 4490143-9 (Version None)
Quarter: 2004Q4

REPORT INFORMATION
  Report Type: 
  Country: None (occurrence: None)
  Receive Date: 20041027
  Receipt Date: 20041019
  Transmission Date: 20050328
  Serious: Yes (Hospitalization, Other)
  Sender: FDA-Public Use
  Company Number: HQWYE987621OCT04

PATIENT
  Sex: Female

DRUGS (3)
  1. PREMPRO [Suspect]
  2. MEDROXYPROGESTERONE ACETATE [Suspect]
  3. PREMARIC (CONJUGATED ESTROGENS, TANLET, UPSEC) [Suspect]

REACTIONS (1)
  - GALLBLADDER CANCER [None]
